FAERS Safety Report 9434277 (Version 1)
Quarter: 2013Q3

REPORT INFORMATION
  Report Type: Report from Study
  Country: CL (occurrence: CL)
  Receive Date: 20130801
  Receipt Date: 20130801
  Transmission Date: 20140515
  Serious: Yes (Other)
  Sender: FDA-Public Use
  Company Number: PHHY2013CL081871

PATIENT
  Age: 75 Year
  Sex: Female

DRUGS (3)
  1. ACLASTA [Suspect]
     Indication: OSTEOPOROSIS
     Dosage: YEARLY
     Route: 042
     Dates: start: 201204
  2. CALCIUM [Concomitant]
  3. PIASCLEDINE                        /01305801/ [Concomitant]

REACTIONS (2)
  - Fall [Not Recovered/Not Resolved]
  - Joint injury [Unknown]
